FAERS Safety Report 17682635 (Version 1)
Quarter: 2020Q2

REPORT INFORMATION
  Report Type: Spontaneous
  Country: US (occurrence: US)
  Receive Date: 20200419
  Receipt Date: 20200419
  Transmission Date: 20200714
  Serious: No
  Sender: FDA-Public Use
  Company Number: US-TEVA-2020-US-1223873

PATIENT

DRUGS (2)
  1. AJOVY [Suspect]
     Active Substance: FREMANEZUMAB-VFRM
     Route: 065
  2. ZONEGRAN [Concomitant]
     Active Substance: ZONISAMIDE
     Route: 065

REACTIONS (2)
  - Fatigue [Unknown]
  - Feeling abnormal [Unknown]
